FAERS Safety Report 5261719-6 (Version None)
Quarter: 2007Q1

REPORT INFORMATION
  Report Type: 
  Country: None (occurrence: None)
  Receive Date: 20061208
  Receipt Date: 20060428
  Transmission Date: 20070707
  Serious: Yes (Other)
  Sender: FDA-Public Use
  Company Number: USA-2006-0024140

PATIENT
  Sex: Male

DRUGS (21)
  1. OXYCONTIN [Suspect]
     Indication: BACK PAIN
  2. HEROIN (DIAMORPHINE) [Suspect]
     Indication: DRUG ABUSER
  3. CYTOTEC [Concomitant]
  4. VIOXX [Concomitant]
  5. SOMA [Concomitant]
  6. ULTRAM [Concomitant]
  7. CELEBREX [Concomitant]
  8. PREVACID [Concomitant]
  9. VICODIN [Concomitant]
  10. FLEXERIL [Concomitant]
  11. EFFEXOR [Concomitant]
  12. AMITRIPTYLINE HCL [Concomitant]
  13. NEURONTIN [Concomitant]
  14. SERZONE [Concomitant]
  15. SKELAXIN [Concomitant]
  16. BUSPAR [Concomitant]
  17. CLONIDINE [Concomitant]
  18. PHENERGAN HCL [Concomitant]
  19. ACIPHEX [Concomitant]
  20. CARAFATE [Concomitant]
  21. CLONAZEPAM [Concomitant]

REACTIONS (26)
  - ANXIETY [None]
  - BACK INJURY [None]
  - BLOOD PRESSURE INCREASED [None]
  - DECREASED APPETITE [None]
  - DEPRESSED MOOD [None]
  - DIARRHOEA [None]
  - DRUG DEPENDENCE [None]
  - DRUG EFFECT DECREASED [None]
  - DRUG WITHDRAWAL SYNDROME [None]
  - DRY SKIN [None]
  - DYSPEPSIA [None]
  - FALL [None]
  - FEELING OF DESPAIR [None]
  - HYPOAESTHESIA [None]
  - INJURY [None]
  - INTENTIONAL DRUG MISUSE [None]
  - MUSCLE SPASMS [None]
  - NAUSEA [None]
  - PAIN [None]
  - PANIC DISORDER [None]
  - PARAESTHESIA [None]
  - RASH [None]
  - SINUS CONGESTION [None]
  - SLEEP DISORDER [None]
  - SUBSTANCE ABUSE [None]
  - VOMITING [None]
